FAERS Safety Report 24327884 (Version 1)
Quarter: 2024Q3

REPORT INFORMATION
  Report Type: Spontaneous
  Country: NL (occurrence: NL)
  Receive Date: 20240917
  Receipt Date: 20240917
  Transmission Date: 20241016
  Serious: Yes (Hospitalization)
  Sender: TEVA
  Company Number: None

PATIENT
  Age: 71 Year
  Sex: Female
  Weight: 86 kg

DRUGS (5)
  1. OXYCODONE [Suspect]
     Active Substance: OXYCODONE
     Indication: Analgesic therapy
     Dosage: 1 PIECE 4 TIMES A DAY, / BRAND NAME NOT SPECIFIED
     Route: 065
     Dates: start: 20240819, end: 20240823
  2. FRAGMIN [Concomitant]
     Active Substance: DALTEPARIN SODIUM
     Indication: Product used for unknown indication
     Dosage: 5000IE=0.2 ML, DALTEPARINE INJVLST 25,000IE/ML / FRAGMIN 5000 INJVLST 25,000IE/ML WWSP 0.2ML
     Route: 065
  3. ACLIDINIUM FORMOTEROL [Concomitant]
     Indication: Product used for unknown indication
     Dosage: INHALATION, ACLIDINIUM/FORMOTEROL INHPDR 340/12UG/DO / BRAND NAME NOT SPECIFIED
     Route: 065
  4. FERROUS FUMARATE [Concomitant]
     Active Substance: FERROUS FUMARATE
     Indication: Product used for unknown indication
     Dosage: BRAND NAME NOT SPECIFIED
     Route: 065
  5. MOVICOLON [Concomitant]
     Active Substance: POLYETHYLENE GLYCOL 3350\POTASSIUM CHLORIDE\SODIUM BICARBONATE\SODIUM CHLORIDE
     Indication: Product used for unknown indication
     Dosage: MACROGOL/SALTS PDR V ORGANIC (MOVIC/MOLAX/GEN CITR) / MOVICOLON POWDER FOR ORGANIC IN SACHET
     Route: 065

REACTIONS (5)
  - Hypoxia [Recovered/Resolved]
  - Decreased appetite [Recovered/Resolved]
  - Nausea [Recovered/Resolved]
  - Headache [Recovered/Resolved]
  - Vomiting [Recovered/Resolved]
